FAERS Safety Report 7887087-9 (Version None)
Quarter: 2011Q4

REPORT INFORMATION
  Report Type: 
  Country: None (occurrence: None)
  Receive Date: 20111102
  Receipt Date: 20110714
  Transmission Date: 20120403
  Serious: No
  Sender: FDA-Public Use
  Company Number: US-AMGEN-USASP2011030479

PATIENT
  Age: 64 Year
  Sex: Female

DRUGS (3)
  1. ENBREL [Suspect]
     Indication: PSORIASIS
     Dosage: 50 MG, 2 TIMES/WK
     Dates: start: 20051011
  2. ECHINACEA                          /01323501/ [Concomitant]
  3. ENBREL [Suspect]
     Indication: GUTTATE PSORIASIS

REACTIONS (3)
  - PSORIASIS [None]
  - SKIN SWELLING [None]
  - RASH PAPULAR [None]
